FAERS Safety Report 8349362-3 (Version None)
Quarter: 2012Q2

REPORT INFORMATION
  Report Type: 
  Country: None (occurrence: None)
  Receive Date: 20120510
  Receipt Date: 20120507
  Transmission Date: 20120825
  Serious: Yes (Other)
  Sender: FDA-Public Use
  Company Number: PHHY2012MX039403

PATIENT
  Sex: Female

DRUGS (3)
  1. FORADIL [Suspect]
     Indication: ASTHMA
     Dosage: 1 DF, DAILY
  2. SUCRALFATE [Concomitant]
  3. OMEPRAZOLE [Concomitant]
     Dosage: 1 DF, UNK

REACTIONS (2)
  - PRODUCTIVE COUGH [None]
  - OXYGEN SATURATION DECREASED [None]
